FAERS Safety Report 6856030-3 (Version None)
Quarter: 2010Q3

REPORT INFORMATION
  Report Type: 
  Country: None (occurrence: None)
  Receive Date: 20100716
  Receipt Date: 20100716
  Transmission Date: 20110219
  Serious: No
  Sender: FDA-Public Use
  Company Number: None

PATIENT
  Age: 58 Year
  Sex: Female
  Weight: 88.4514 kg

DRUGS (2)
  1. PREVACID [Suspect]
     Indication: GASTROOESOPHAGEAL REFLUX DISEASE
     Dosage: 30MG 1 QD PO
     Route: 048
     Dates: start: 20060101
  2. OMEPRAZOLE [Suspect]
     Dosage: 20MG 2 QD PO
     Route: 048
     Dates: start: 20050101

REACTIONS (2)
  - COUGH [None]
  - GASTROOESOPHAGEAL REFLUX DISEASE [None]
